FAERS Safety Report 17717923 (Version 6)
Quarter: 2020Q4

REPORT INFORMATION
  Report Type: Spontaneous
  Country: SK (occurrence: SK)
  Receive Date: 20200428
  Receipt Date: 20201028
  Transmission Date: 20210113
  Serious: Yes (Life-Threatening, Hospitalization, Other)
  Sender: FDA-Public Use
  Company Number: NVSC2020SK109723

PATIENT
  Age: 6 Year
  Sex: Female

DRUGS (26)
  1. CYCLOPHOSPHAMIDE. [Suspect]
     Active Substance: CYCLOPHOSPHAMIDE
     Indication: PRODUCT USED FOR UNKNOWN INDICATION
     Dosage: UNK
     Route: 065
  2. AMPHOTERICIN B. [Suspect]
     Active Substance: AMPHOTERICIN B
     Indication: SINUSITIS
     Dosage: 10 MG/KG, QD
     Route: 065
  3. CALCIUM FOLINATE [Suspect]
     Active Substance: LEUCOVORIN CALCIUM
     Indication: ACUTE LEUKAEMIA
     Dosage: UNK
     Route: 065
  4. POSACONAZOLE [Suspect]
     Active Substance: POSACONAZOLE
     Indication: FUNGAL INFECTION
     Dosage: UNK
     Route: 065
  5. MEROPENEM. [Suspect]
     Active Substance: MEROPENEM
     Indication: FEBRILE NEUTROPENIA
  6. AMIKACIN. [Suspect]
     Active Substance: AMIKACIN
     Indication: ANTIBIOTIC THERAPY
  7. RIBAVIRIN. [Suspect]
     Active Substance: RIBAVIRIN
     Indication: RESPIRATORY SYNCYTIAL VIRUS INFECTION
     Dosage: UNK
     Route: 065
  8. AMIKACIN. [Suspect]
     Active Substance: AMIKACIN
     Indication: FEBRILE NEUTROPENIA
     Dosage: UNK
     Route: 065
  9. FLUCONAZOLE. [Suspect]
     Active Substance: FLUCONAZOLE
     Indication: ANTIFUNGAL PROPHYLAXIS
     Dosage: UNK
     Route: 065
  10. VANCOMYCIN [Suspect]
     Active Substance: VANCOMYCIN
     Indication: ANTIBIOTIC THERAPY
     Dosage: UNK
     Route: 065
  11. POSACONAZOLE [Suspect]
     Active Substance: POSACONAZOLE
     Indication: MUCORMYCOSIS
  12. MEROPENEM. [Suspect]
     Active Substance: MEROPENEM
     Indication: ANTIBIOTIC THERAPY
     Dosage: UNK
     Route: 065
  13. CYTARABINE. [Suspect]
     Active Substance: CYTARABINE
     Indication: PRODUCT USED FOR UNKNOWN INDICATION
     Dosage: UNK
     Route: 065
  14. MERCAPTOPURINE. [Suspect]
     Active Substance: MERCAPTOPURINE
     Indication: ACUTE LYMPHOCYTIC LEUKAEMIA
     Dosage: UNK
     Route: 065
  15. VINCRISTINE [Suspect]
     Active Substance: VINCRISTINE
     Indication: PRODUCT USED FOR UNKNOWN INDICATION
     Dosage: UNK
     Route: 065
  16. DAUNORUBICIN [Suspect]
     Active Substance: DAUNORUBICIN
     Indication: PRODUCT USED FOR UNKNOWN INDICATION
     Dosage: UNK
     Route: 065
  17. CASPOFUNGIN [Concomitant]
     Active Substance: CASPOFUNGIN
     Indication: PRODUCT USED FOR UNKNOWN INDICATION
     Dosage: UNK
     Route: 065
  18. METHOTREXATE. [Suspect]
     Active Substance: METHOTREXATE
     Indication: ACUTE LYMPHOCYTIC LEUKAEMIA
     Dosage: UNK
     Route: 065
  19. METHOTREXATE. [Suspect]
     Active Substance: METHOTREXATE
     Indication: B PRECURSOR TYPE ACUTE LEUKAEMIA
  20. VANCOMYCIN [Suspect]
     Active Substance: VANCOMYCIN
     Indication: FEBRILE NEUTROPENIA
  21. PIPERACILLIN SODIUM [Suspect]
     Active Substance: PIPERACILLIN SODIUM
     Indication: ANTIBIOTIC THERAPY
  22. AMPHOTERICIN B. [Suspect]
     Active Substance: AMPHOTERICIN B
     Indication: RHINOCEREBRAL MUCORMYCOSIS
     Dosage: 5 MG/KG, QD
     Route: 065
  23. PIPERACILLIN SODIUM [Suspect]
     Active Substance: PIPERACILLIN SODIUM
     Indication: FEBRILE NEUTROPENIA
     Dosage: UNK
     Route: 065
  24. PEGASPARGASE [Suspect]
     Active Substance: PEGASPARGASE
     Indication: PRODUCT USED FOR UNKNOWN INDICATION
     Dosage: UNK
     Route: 065
  25. PREDNISONE. [Suspect]
     Active Substance: PREDNISONE
     Indication: ACUTE LYMPHOCYTIC LEUKAEMIA
     Dosage: UNK
     Route: 065
  26. PREDNISONE. [Suspect]
     Active Substance: PREDNISONE
     Indication: IMMUNOSUPPRESSANT DRUG THERAPY

REACTIONS (9)
  - Overgrowth fungal [Recovering/Resolving]
  - Chills [Recovered/Resolved]
  - Product use in unapproved indication [Unknown]
  - Rhinocerebral mucormycosis [Recovered/Resolved]
  - Mucormycosis [Recovered/Resolved]
  - Pseudomonal sepsis [Recovered/Resolved]
  - Tremor [Recovered/Resolved]
  - Off label use [Unknown]
  - Febrile neutropenia [Recovering/Resolving]

NARRATIVE: CASE EVENT DATE: 2020
